FAERS Safety Report 21233396 (Version 2)
Quarter: 2022Q3

REPORT INFORMATION
  Report Type: Report from Study
  Country: US (occurrence: US)
  Receive Date: 20220819
  Receipt Date: 20220928
  Transmission Date: 20221027
  Serious: Yes (Hospitalization)
  Sender: FDA-Public Use
  Company Number: US-GILEAD-2022-0592905

PATIENT
  Age: 55 Year
  Sex: Female

DRUGS (7)
  1. AMBRISENTAN [Suspect]
     Active Substance: AMBRISENTAN
     Indication: Pulmonary arterial hypertension
     Dosage: 10 MG, QD
     Route: 065
     Dates: start: 20171017
  2. AMBRISENTAN [Suspect]
     Active Substance: AMBRISENTAN
     Dosage: 10 MG
     Route: 065
     Dates: start: 20171016
  3. BUMETANIDE [Concomitant]
     Active Substance: BUMETANIDE
  4. PROCTOZONE HC [Concomitant]
     Active Substance: HYDROCORTISONE
  5. TADALIFT [Concomitant]
  6. PROCTOZONE [Concomitant]
     Active Substance: HYDROCORTISONE
  7. TADALAFIL [Concomitant]
     Active Substance: TADALAFIL

REACTIONS (2)
  - COVID-19 [Unknown]
  - Fatigue [Not Recovered/Not Resolved]

NARRATIVE: CASE EVENT DATE: 20220701
